FAERS Safety Report 6610949-7 (Version None)
Quarter: 2010Q1

REPORT INFORMATION
  Report Type: 
  Country: None (occurrence: None)
  Receive Date: 20100222
  Receipt Date: 20100212
  Transmission Date: 20100710
  Serious: Yes (Death, Hospitalization)
  Sender: FDA-Public Use
  Company Number: 2010SP000477

PATIENT
  Sex: Male

DRUGS (3)
  1. LUNESTA [Suspect]
     Dosage: 2 MG; HS; ORAL
     Route: 048
     Dates: start: 20070101, end: 20100101
  2. AMBIEN [Suspect]
  3. CLONAZEPAM [Suspect]

REACTIONS (13)
  - ANXIETY [None]
  - ASPHYXIA [None]
  - COMPLETED SUICIDE [None]
  - CONDITION AGGRAVATED [None]
  - DEPRESSION [None]
  - GASTRIC DISORDER [None]
  - HYPOCHONDRIASIS [None]
  - IRRITABLE BOWEL SYNDROME [None]
  - MULTIPLE DRUG OVERDOSE INTENTIONAL [None]
  - PROSTATIC DISORDER [None]
  - RASH [None]
  - SUICIDE ATTEMPT [None]
  - UROGENITAL DISORDER [None]
